FAERS Safety Report 10015166 (Version 3)
Quarter: 2015Q3

REPORT INFORMATION
  Report Type: Spontaneous
  Country: US (occurrence: US)
  Receive Date: 20140317
  Receipt Date: 20150812
  Transmission Date: 20151125
  Serious: No
  Sender: FDA-Public Use
  Company Number: US-GILEAD-2012-0058307

PATIENT
  Age: 77 Year
  Sex: Female

DRUGS (1)
  1. LETAIRIS [Suspect]
     Active Substance: AMBRISENTAN
     Indication: SYSTEMIC SCLEROSIS
     Dosage: 10 MG, QD
     Route: 048
     Dates: start: 20111109

REACTIONS (3)
  - Dyspnoea exertional [Unknown]
  - Gait disturbance [Unknown]
  - Unevaluable event [Unknown]
